FAERS Safety Report 8961406 (Version 1)
Quarter: 2012Q4

REPORT INFORMATION
  Report Type: 
  Country: US (occurrence: US)
  Receive Date: 20121212
  Receipt Date: 20121212
  Transmission Date: 20130627
  Serious: No
  Sender: FDA-Public Use
  Company Number: US-MUTUAL PHARMACEUTICAL COMPANY, INC.-FDER20120003

PATIENT
  Age: 79 Year
  Sex: Female
  Weight: 56.75 kg

DRUGS (5)
  1. FELODIPINE [Suspect]
     Indication: HYPERTENSION
     Route: 048
     Dates: start: 20120229, end: 2012
  2. FELODIPINE [Suspect]
     Route: 048
     Dates: start: 2012
  3. FLECAINIDE [Concomitant]
     Indication: ATRIAL FIBRILLATION
     Route: 048
  4. ASPIRIN [Concomitant]
     Indication: ANTICOAGULANT THERAPY
     Route: 048
  5. WARFARIN [Concomitant]
     Indication: CARDIAC DISORDER PROPHYLAXIS
     Route: 048

REACTIONS (3)
  - Pruritus [Recovered/Resolved]
  - Headache [Recovered/Resolved]
  - Heart rate increased [Recovering/Resolving]
